FAERS Safety Report 21626823 (Version 1)
Quarter: 2022Q4

REPORT INFORMATION
  Report Type: Spontaneous
  Country: US (occurrence: US)
  Receive Date: 20221122
  Receipt Date: 20221122
  Transmission Date: 20230112
  Serious: No
  Sender: FDA-Public Use
  Company Number: US-MICRO LABS LIMITED-ML2022-05474

PATIENT
  Age: 72 Year
  Sex: Female
  Weight: 81.720 kg

DRUGS (1)
  1. CROMOLYN SODIUM [Suspect]
     Active Substance: CROMOLYN SODIUM
     Indication: Hypersensitivity
     Dosage: DAILY AS DIRECTED
     Route: 048
     Dates: end: 20220424

REACTIONS (3)
  - Eye swelling [Recovered/Resolved]
  - Swelling face [Recovered/Resolved]
  - Product quality issue [Unknown]

NARRATIVE: CASE EVENT DATE: 20220422
